FAERS Safety Report 11149926 (Version 1)
Quarter: 2015Q2

REPORT INFORMATION
  Report Type: Spontaneous
  Country: FR (occurrence: FR)
  Receive Date: 20150529
  Receipt Date: 20150529
  Transmission Date: 20150821
  Serious: Yes (Hospitalization, Other)
  Sender: FDA-Public Use
  Company Number: FR-BAXTER-2015BAX027913

PATIENT
  Age: 7 Year
  Sex: Female

DRUGS (6)
  1. HOLOXAN 2000 MG, POUDRE POUR USAGE PARENT?RAL [Suspect]
     Active Substance: IFOSFAMIDE
     Indication: OSTEOSARCOMA
     Dosage: FROM DAY 1 TO DAY 4; (3G/M^2/DAY)
     Route: 042
     Dates: start: 20141225, end: 20141228
  2. HOLOXAN 2000 MG, POUDRE POUR USAGE PARENT?RAL [Suspect]
     Active Substance: IFOSFAMIDE
     Route: 042
     Dates: start: 20150224, end: 20150227
  3. CELLTOP 100 MG/5 ML, SOLUTION INJECTABLE POUR PERFUSION [Suspect]
     Active Substance: ETOPOSIDE
     Indication: OSTEOSARCOMA
     Route: 065
     Dates: start: 20150117
  4. CELLTOP 100 MG/5 ML, SOLUTION INJECTABLE POUR PERFUSION [Suspect]
     Active Substance: ETOPOSIDE
     Route: 065
     Dates: start: 20150224
  5. ZOLEDRONATE [Suspect]
     Active Substance: ZOLEDRONIC ACID
     Indication: OSTEOSARCOMA
     Route: 065
     Dates: start: 20141225
  6. METHOTREXATE [Suspect]
     Active Substance: METHOTREXATE
     Indication: OSTEOSARCOMA
     Dosage: HIGH DOSE, 5 COURSES
     Route: 065
     Dates: end: 20150217

REACTIONS (6)
  - Clostridium difficile colitis [Unknown]
  - Hypokalaemia [Recovered/Resolved]
  - Viral diarrhoea [Unknown]
  - Hypophosphataemia [Recovered/Resolved]
  - Aplasia [Recovered/Resolved]
  - Neutropenia [Unknown]

NARRATIVE: CASE EVENT DATE: 20150307
